FAERS Safety Report 15335242 (Version 7)
Quarter: 2024Q2

REPORT INFORMATION
  Report Type: Report from Study
  Country: EG (occurrence: EG)
  Receive Date: 20180830
  Receipt Date: 20240422
  Transmission Date: 20240716
  Serious: Yes (Death, Other)
  Sender: FDA-Public Use
  Company Number: EG-PFIZER INC-2018332107

PATIENT
  Age: 31 Year
  Sex: Female
  Weight: 46 kg

DRUGS (1)
  1. SUTENT [Suspect]
     Active Substance: SUNITINIB MALATE
     Indication: Metastatic renal cell carcinoma
     Dosage: 50 MG, CYCLIC  (ONCE TWO WEEKS ON AND ONE WEEK OFF)
     Route: 048
     Dates: start: 20180731, end: 20180814

REACTIONS (5)
  - Neoplasm progression [Fatal]
  - Renal impairment [Recovering/Resolving]
  - Urinary retention [Unknown]
  - Haemorrhage urinary tract [Recovering/Resolving]
  - Anaemia [Unknown]

NARRATIVE: CASE EVENT DATE: 20180814
